FAERS Safety Report 5848499-8 (Version None)
Quarter: 2008Q3

REPORT INFORMATION
  Report Type: 
  Country: None (occurrence: None)
  Receive Date: 20080815
  Receipt Date: 20080815
  Transmission Date: 20090109
  Serious: Yes (Other)
  Sender: FDA-Public Use
  Company Number: None

PATIENT
  Sex: Male

DRUGS (2)
  1. METHOTREXATE [Suspect]
     Dosage: 7.5 MG BID ONCE WEEKLY PO
     Route: 048
     Dates: start: 20080723, end: 20080808
  2. TRIAMCINOLONE ACETONIDE [Concomitant]

REACTIONS (3)
  - LIP SWELLING [None]
  - PAIN [None]
  - RASH [None]
